FAERS Safety Report 7988993-7 (Version None)
Quarter: 2011Q4

REPORT INFORMATION
  Report Type: 
  Country: None (occurrence: None)
  Receive Date: 20111219
  Receipt Date: 20111213
  Transmission Date: 20120403
  Serious: No
  Sender: FDA-Public Use
  Company Number: PHHY2011JP29828

PATIENT
  Sex: Male
  Weight: 95 kg

DRUGS (5)
  1. DIOVAN HCT [Interacting]
     Indication: HYPERTENSION
     Dosage: 1 DF, UNK
     Route: 048
     Dates: start: 20101119
  2. RASILEZ [Suspect]
     Indication: HYPERTENSION
     Dosage: 150 MG
     Route: 048
     Dates: start: 20110314, end: 20110404
  3. ALLOPURINOL [Interacting]
     Indication: GOUT
     Dosage: 100 MG
     Route: 048
     Dates: start: 20030708
  4. AMLODIPINE [Concomitant]
     Indication: HYPERTENSION
     Dosage: 10 MG
     Route: 048
     Dates: start: 20090828
  5. ALOCHINON [Interacting]
     Indication: HYPERTENSION
     Dosage: 10 MG
     Route: 048
     Dates: start: 20030708

REACTIONS (3)
  - PHOTOSENSITIVITY REACTION [None]
  - ECZEMA [None]
  - RASH [None]
